FAERS Safety Report 25253959 (Version 1)
Quarter: 2025Q2

REPORT INFORMATION
  Report Type: Report from Study
  Country: CA (occurrence: CA)
  Receive Date: 20250430
  Receipt Date: 20250430
  Transmission Date: 20250716
  Serious: Yes (Death, Other)
  Sender: CSL BEHRING
  Company Number: CA-BEH-2024168065

PATIENT
  Age: 85 Year
  Sex: Male
  Weight: 65.8 kg

DRUGS (5)
  1. HIZENTRA [Suspect]
     Active Substance: HUMAN IMMUNOGLOBULIN G
     Indication: Secondary immunodeficiency
     Dosage: 8 GRAM, QW
     Route: 058
     Dates: start: 20160830
  2. NEUPOGEN [Concomitant]
     Active Substance: FILGRASTIM
  3. DEXAMETHASONE [Concomitant]
     Active Substance: DEXAMETHASONE
  4. ALLOPURINOL [Concomitant]
     Active Substance: ALLOPURINOL
  5. B12 [Concomitant]

REACTIONS (1)
  - Death [Fatal]

NARRATIVE: CASE EVENT DATE: 20241201
